FAERS Safety Report 9320308 (Version 2)
Quarter: 2013Q2

REPORT INFORMATION
  Report Type: Spontaneous
  Country: DE (occurrence: DE)
  Receive Date: 20130530
  Receipt Date: 20130619
  Transmission Date: 20140414
  Serious: Yes (Other)
  Sender: FDA-Public Use
  Company Number: DE-B.I. PHARMACEUTICALS,INC./RIDGEFIELD-2013-DE-01422DE

PATIENT
  Age: 63 Year
  Sex: 0

DRUGS (1)
  1. PRADAXA [Suspect]
     Dosage: PACKAGE SIZE 150 MG
     Dates: start: 20130422

REACTIONS (1)
  - Blood creatine increased [Unknown]
